FAERS Safety Report 21722827 (Version 3)
Quarter: 2023Q1

REPORT INFORMATION
  Report Type: Spontaneous
  Country: CN (occurrence: CN)
  Receive Date: 20221213
  Receipt Date: 20230120
  Transmission Date: 20230418
  Serious: Yes (Hospitalization, Other)
  Sender: FDA-Public Use
  Company Number: CN-PFIZER INC-202201357620

PATIENT
  Age: 73 Year
  Sex: Female
  Weight: 41 kg

DRUGS (29)
  1. MEROPENEM [Suspect]
     Active Substance: MEROPENEM
     Indication: Infection
     Dosage: 1 G, 3X/DAY (1G Q8H)
     Route: 042
     Dates: start: 20201210, end: 20201215
  2. METHYLPREDNISOLONE [Concomitant]
     Active Substance: METHYLPREDNISOLONE
     Indication: Antiallergic therapy
     Dosage: 20 MG, DAILY
     Route: 042
     Dates: start: 20201210, end: 20201215
  3. AMBROXOL [Concomitant]
     Active Substance: AMBROXOL
     Dosage: UNK, 3X/DAY
     Route: 048
     Dates: start: 20201126, end: 20201202
  4. AMBROXOL [Concomitant]
     Active Substance: AMBROXOL
     Dosage: 30 MG, 3X/DAY
     Route: 048
     Dates: start: 20201212, end: 20201218
  5. LEVOFLOXACIN LACTATE [Concomitant]
     Active Substance: LEVOFLOXACIN LACTATE
     Indication: Infection
     Dosage: 200 ML, 4X/DAY
     Route: 042
     Dates: start: 20201126, end: 20201206
  6. ACETAMINOPHEN [Concomitant]
     Active Substance: ACETAMINOPHEN
     Dosage: UNK
     Dates: start: 20201201
  7. AMINOPHENAZONE [Concomitant]
     Active Substance: AMINOPHENAZONE
     Dosage: UNK
     Dates: start: 20201201
  8. CAFFEINE [Concomitant]
     Active Substance: CAFFEINE
     Dosage: UNK
     Dates: start: 20201201
  9. CHLORPHENIRAMINE MALEATE [Concomitant]
     Active Substance: CHLORPHENIRAMINE MALEATE
     Dosage: UNK
     Route: 048
     Dates: start: 20201201
  10. INDOMETHACIN [Concomitant]
     Active Substance: INDOMETHACIN
     Dosage: 0.03 G, BY ANAL PLUG
     Route: 054
     Dates: start: 20201201
  11. LANSOPRAZOLE [Concomitant]
     Active Substance: LANSOPRAZOLE
     Dosage: UNK, 2X/DAY
     Route: 048
     Dates: start: 20201203, end: 20201218
  12. SUCRALFATE [Concomitant]
     Active Substance: SUCRALFATE
     Dosage: 1 BAG, 2X/DAY
     Route: 048
     Dates: start: 20201203, end: 20201218
  13. LACTULOSE [Concomitant]
     Active Substance: LACTULOSE
     Dosage: 10 ML
     Route: 048
     Dates: start: 20201205
  14. DESLORATADINE [Concomitant]
     Active Substance: DESLORATADINE
     Dosage: 5 MG, 4X/DAY
     Route: 048
     Dates: start: 20201207, end: 20201218
  15. CHLORPHENIRAMINE [Concomitant]
     Active Substance: CHLORPHENIRAMINE
     Dosage: 1 TABLET, EVERY NIGHT
     Route: 048
     Dates: start: 20201207, end: 20201212
  16. SPIRONOLACTONE [Concomitant]
     Active Substance: SPIRONOLACTONE
     Dosage: 2 TABLETS, 2X/DAY
     Route: 048
     Dates: start: 20201207, end: 20201218
  17. SODIUM CHLORIDE [Concomitant]
     Active Substance: SODIUM CHLORIDE
     Dosage: 100 ML, 3X/DAY
     Route: 042
     Dates: start: 20201208, end: 20201209
  18. SODIUM CHLORIDE [Concomitant]
     Active Substance: SODIUM CHLORIDE
     Dosage: 4X/DAY
     Route: 042
     Dates: start: 20201210
  19. SODIUM CHLORIDE [Concomitant]
     Active Substance: SODIUM CHLORIDE
     Dosage: 100 ML, 3X/DAY
     Route: 042
     Dates: start: 20201211, end: 20201211
  20. SODIUM CHLORIDE [Concomitant]
     Active Substance: SODIUM CHLORIDE
     Dosage: 100 ML, 4X/DAY
     Route: 042
     Dates: start: 20201211, end: 20201215
  21. SODIUM CHLORIDE [Concomitant]
     Active Substance: SODIUM CHLORIDE
     Dosage: 250 ML, 4X/DAY
     Dates: start: 20201215, end: 20201218
  22. LOXOPROFEN SODIUM [Concomitant]
     Active Substance: LOXOPROFEN SODIUM
     Dosage: 1 TABLET
     Route: 048
     Dates: start: 20201210
  23. GLUCOSE INJECTION MP [Concomitant]
     Dosage: 100 ML
     Route: 042
     Dates: start: 20201210
  24. GLUCOSE INJECTION MP [Concomitant]
     Dosage: UNK, 4X/DAY
     Route: 042
     Dates: start: 20201211, end: 20201215
  25. AMINOPHYLLINE\CHLORPHENIRAMINE MALEATE\METHOXYPHENAMINE HYDROCHLORIDE\ [Concomitant]
     Active Substance: AMINOPHYLLINE\CHLORPHENIRAMINE MALEATE\METHOXYPHENAMINE HYDROCHLORIDE\NOSCAPINE
     Dosage: 2 GRANULES, 3X/DAY
     Route: 048
     Dates: start: 20201213, end: 20201218
  26. HYDROXYCHLOROQUINE [Concomitant]
     Active Substance: HYDROXYCHLOROQUINE
     Dosage: 2 TABLETS
     Route: 048
     Dates: start: 20201215
  27. PREDNISONE [Concomitant]
     Active Substance: PREDNISONE
     Dosage: 4 TABLETS, 4X/DAY
     Route: 048
     Dates: start: 20201215, end: 20201215
  28. PREDNISONE [Concomitant]
     Active Substance: PREDNISONE
     Dosage: 3 TABLETS, 4X/DAY
     Route: 048
     Dates: start: 20201215, end: 20201218
  29. CEFTRIAXONE [Concomitant]
     Active Substance: CEFTRIAXONE
     Dosage: UNK, 4X/DAY
     Route: 042

REACTIONS (1)
  - Seizure like phenomena [Recovered/Resolved]

NARRATIVE: CASE EVENT DATE: 20201215
